FAERS Safety Report 6974114-6 (Version None)
Quarter: 2010Q3

REPORT INFORMATION
  Report Type: 
  Country: None (occurrence: None)
  Receive Date: 20100909
  Receipt Date: 20100902
  Transmission Date: 20110219
  Serious: Yes (Other)
  Sender: FDA-Public Use
  Company Number: US-BAYER-201030716NA

PATIENT
  Age: 36 Year
  Sex: Female

DRUGS (7)
  1. MIRENA [Suspect]
     Indication: CONTRACEPTION
     Dosage: FREQUENCY: CONTINUOUS
     Route: 015
     Dates: start: 20100718
  2. UNKNOWN DRUG [Concomitant]
     Indication: OCCIPITAL NEURALGIA
     Route: 065
  3. ELAVIL [Concomitant]
  4. LISINOPRIL [Concomitant]
     Indication: HYPERTENSION
  5. XOLAR [Concomitant]
  6. ADVAIR DISKUS 100/50 [Concomitant]
     Route: 055
  7. EXCEDRIN (MIGRAINE) [Concomitant]
     Indication: TENSION HEADACHE

REACTIONS (3)
  - BRAIN MASS [None]
  - HYPOMENORRHOEA [None]
  - METRORRHAGIA [None]
